FAERS Safety Report 7383116-X (Version None)
Quarter: 2011Q1

REPORT INFORMATION
  Report Type: 
  Country: None (occurrence: None)
  Receive Date: 20110322
  Receipt Date: 20110316
  Transmission Date: 20110831
  Serious: Yes (Other)
  Sender: FDA-Public Use
  Company Number: 2011SP001881

PATIENT
  Age: 18 Year
  Sex: Female
  Weight: 64.8644 kg

DRUGS (2)
  1. IBUPROFEN [Suspect]
     Indication: HEADACHE
  2. IMPLANON [Suspect]
     Indication: CONTRACEPTION
     Dates: start: 20101101

REACTIONS (5)
  - HEADACHE [None]
  - NAUSEA [None]
  - HAEMATEMESIS [None]
  - BACK PAIN [None]
  - GASTRITIS [None]
